FAERS Safety Report 5515926-5 (Version None)
Quarter: 2007Q4

REPORT INFORMATION
  Report Type: 
  Country: None (occurrence: None)
  Receive Date: 20071114
  Receipt Date: 20071106
  Transmission Date: 20080405
  Serious: Yes (Other)
  Sender: FDA-Public Use
  Company Number: PHFR2007GB03241

PATIENT
  Age: 70 Year
  Sex: Female

DRUGS (2)
  1. TEGRETOL [Suspect]
     Indication: TRIGEMINAL NEURALGIA
     Dosage: 100 MG, BID
     Route: 065
  2. TEGRETOL [Suspect]
     Dosage: 200 MG, BID
     Route: 065

REACTIONS (3)
  - ANGIOEDEMA [None]
  - ERYTHEMA [None]
  - URTICARIA [None]
